FAERS Safety Report 5314671-9 (Version None)
Quarter: 2007Q2

REPORT INFORMATION
  Report Type: 
  Country: None (occurrence: None)
  Receive Date: 20070502
  Receipt Date: 20070419
  Transmission Date: 20071010
  Serious: Yes (Death)
  Sender: FDA-Public Use
  Company Number: TW-GENENTECH-237714

PATIENT
  Age: 79 Year
  Sex: Male

DRUGS (4)
  1. RITUXIMAB [Suspect]
     Indication: LYMPHOMA
     Dosage: 375 MG/M2, UNK
     Route: 042
  2. BETAMETHASONE [Concomitant]
     Indication: PREMEDICATION
  3. DIPHENHYDRAMINE HCL [Concomitant]
     Indication: PREMEDICATION
  4. PARACETAMOL [Concomitant]
     Indication: PREMEDICATION

REACTIONS (6)
  - HAEMOPNEUMOTHORAX [None]
  - HISTIOCYTOSIS HAEMATOPHAGIC [None]
  - HYPOTENSION [None]
  - HYPOXIA [None]
  - INTERSTITIAL LUNG DISEASE [None]
  - TACHYCARDIA [None]
